FAERS Safety Report 9170373 (Version 1)
Quarter: 2013Q1

REPORT INFORMATION
  Report Type: Spontaneous
  Country: SE (occurrence: None)
  Receive Date: 20130311
  Receipt Date: 20130311
  Transmission Date: 20140127
  Serious: Yes (Other)
  Sender: FDA-Public Use
  Company Number: 2013-03535

PATIENT
  Age: 85 Year
  Sex: Female

DRUGS (2)
  1. SODIUM FLUORIDE [Suspect]
     Indication: DRY MOUTH
     Dosage: SMALL AMOUNT IN THE EVENING BEFORE BEDTIME, ORAL
  2. DIGOXIN (DIGOXIN) [Concomitant]

REACTIONS (2)
  - Anxiety [None]
  - Abdominal discomfort [None]
